FAERS Safety Report 6509750-4 (Version None)
Quarter: 2009Q4

REPORT INFORMATION
  Report Type: 
  Country: None (occurrence: None)
  Receive Date: 20091221
  Receipt Date: 20091221
  Transmission Date: 20100525
  Serious: Yes (Hospitalization)
  Sender: FDA-Public Use
  Company Number: None

PATIENT
  Age: 41 Year
  Sex: Female
  Weight: 50 kg

DRUGS (30)
  1. BEVACIZUMAB [Suspect]
     Indication: METASTATIC GASTRIC CANCER
     Dosage: 10MG/KG
     Dates: start: 20091009, end: 20091130
  2. CISPLATIN [Suspect]
     Indication: METASTATIC GASTRIC CANCER
     Dosage: 22.5MG/M2
     Dates: start: 20091009, end: 20091130
  3. IRINOTECAN HCL [Suspect]
     Indication: METASTATIC GASTRIC CANCER
     Dosage: 48.75MG/M
     Dates: start: 20091009, end: 20091130
  4. COLACE (DOCUSATE SODIUM) [Concomitant]
  5. DECADRON [Concomitant]
  6. DILAUDID(HYDROMORPHONE CL) [Concomitant]
  7. FERROUS SULFATE TAB [Concomitant]
  8. LORAZEPAM [Concomitant]
  9. MARINOL [Concomitant]
  10. MIRALAX [Concomitant]
  11. OLANZAPINE [Concomitant]
  12. OXYCODONE [Concomitant]
  13. PROTONIX [Concomitant]
  14. REGLAN (METOCLOPRAMIDE ICL) [Concomitant]
  15. SIMETHICONE [Concomitant]
  16. SUCRALFATE [Concomitant]
  17. ZOFRAN (CHEMO N/V (ONDANSETRON HC (CHEM... [Concomitant]
  18. ASPIRIN [Concomitant]
  19. CARAFATE (SUCRALPATE) [Concomitant]
  20. COMPAZINE (PROCH LORPERAZINE MALEAE) [Concomitant]
  21. DEPO-PROVERA [Concomitant]
  22. FLAGYL [Concomitant]
  23. NEXIUM [Concomitant]
  24. ORTHO EVRA (NOREL GESTROMIN/ETHINYLESTRAD? [Concomitant]
  25. PEPTO-BISMOL TABLETS (BISMUTH SUBSGLICYLATE TABLET) [Concomitant]
  26. PREDNISONE [Concomitant]
  27. PRILOSEC [Concomitant]
  28. PROTONIX [Concomitant]
  29. RANITIDINE HCL [Concomitant]
  30. TETRACYCLINE HCL [Concomitant]

REACTIONS (2)
  - GASTROINTESTINAL HAEMORRHAGE [None]
  - HAEMATEMESIS [None]
